FAERS Safety Report 5074996-1 (Version None)
Quarter: 2006Q3

REPORT INFORMATION
  Report Type: 
  Country: None (occurrence: None)
  Receive Date: 20060804
  Receipt Date: 20060720
  Transmission Date: 20061208
  Serious: Yes (Hospitalization)
  Sender: FDA-Public Use
  Company Number: US017230

PATIENT
  Age: 33 Year
  Sex: Female

DRUGS (2)
  1. ACTIQ (SUGAR-FREE) [Suspect]
     Dates: start: 20041213, end: 20041213
  2. METHADONE ^PHARMACIA + UPJOHN^ [Suspect]
     Dates: start: 20041213, end: 20041213

REACTIONS (6)
  - COMA [None]
  - HYPERVENTILATION [None]
  - LOSS OF CONSCIOUSNESS [None]
  - SUICIDE ATTEMPT [None]
  - TACHYCARDIA [None]
  - TACHYPNOEA [None]
